FAERS Safety Report 20633594 (Version 1)
Quarter: 2022Q1

REPORT INFORMATION
  Report Type: Spontaneous
  Country: US (occurrence: US)
  Receive Date: 20220324
  Receipt Date: 20220324
  Transmission Date: 20220424
  Serious: Yes (Other)
  Sender: FDA-Public Use
  Company Number: US-TEVA-2022-US-2020223

PATIENT
  Sex: Female

DRUGS (1)
  1. METFORMIN HYDROCHLORIDE [Suspect]
     Active Substance: METFORMIN HYDROCHLORIDE
     Dosage: FOR ABOUT 20 YEARS
     Route: 065

REACTIONS (6)
  - Hepatic cancer [Unknown]
  - Hepatic lesion [Unknown]
  - Illness [Unknown]
  - Anaemia [Unknown]
  - Balance disorder [Unknown]
  - Product impurity [Unknown]
